FAERS Safety Report 7054542-3 (Version None)
Quarter: 2010Q4

REPORT INFORMATION
  Report Type: 
  Country: None (occurrence: None)
  Receive Date: 20101020
  Receipt Date: 20101009
  Transmission Date: 20110411
  Serious: Yes (Hospitalization, Other)
  Sender: FDA-Public Use
  Company Number: CA-ELI_LILLY_AND_COMPANY-CA201010002538

PATIENT
  Age: 79 Year
  Sex: Female

DRUGS (3)
  1. FORTEO [Suspect]
     Indication: OSTEOPOROSIS
     Dosage: 20 UG, DAILY (1/D)
     Route: 058
     Dates: start: 20100720
  2. PREDNISONE TAB [Concomitant]
  3. PAXIL [Concomitant]

REACTIONS (3)
  - ASTHENIA [None]
  - FALL [None]
  - HIP FRACTURE [None]
